FAERS Safety Report 20700161 (Version 1)
Quarter: 2022Q2

REPORT INFORMATION
  Report Type: Spontaneous
  Country: US (occurrence: None)
  Receive Date: 20220410
  Receipt Date: 20220410
  Transmission Date: 20220721
  Serious: No
  Sender: FDA-Public Use
  Company Number: None

PATIENT
  Age: 50 Year
  Sex: Female
  Weight: 79.65 kg

DRUGS (9)
  1. CREAMY ACNE FACE WASH [Suspect]
     Active Substance: BENZOYL PEROXIDE
     Indication: Acne
     Dosage: OTHER QUANTITY : 1 SQUIRT?OTHER FREQUENCY : TWICE A WEEK TOPICAL?
     Route: 061
     Dates: start: 20220320, end: 20220402
  2. ATOMOXETINE [Concomitant]
     Active Substance: ATOMOXETINE
  3. ESCITALOPRAM [Concomitant]
     Active Substance: ESCITALOPRAM OXALATE
  4. VALACYCLOVIR [Concomitant]
     Active Substance: VALACYCLOVIR HYDROCHLORIDE
  5. SPIRONOLACTONE [Concomitant]
     Active Substance: SPIRONOLACTONE
  6. TRAZODONE [Concomitant]
     Active Substance: TRAZODONE HYDROCHLORIDE
  7. Pseudoephedrine/loratadine 12 hour [Concomitant]
  8. cholecalciferol 2000 units [Concomitant]
  9. iron sulfate 65mg [Concomitant]

REACTIONS (6)
  - Chemical burn [None]
  - Application site burn [None]
  - Erythema [None]
  - Frustration tolerance decreased [None]
  - Product tampering [None]
  - Expired product administered [None]

NARRATIVE: CASE EVENT DATE: 20220402
